FAERS Safety Report 9511291 (Version 2)
Quarter: 2014Q1

REPORT INFORMATION
  Report Type: Spontaneous
  Country: US (occurrence: None)
  Receive Date: 20130305
  Receipt Date: 20140306
  Transmission Date: 20141002
  Serious: Yes (Other)
  Sender: FDA-Public Use
  Company Number: 163-21880-12113543

PATIENT
  Age: 63 Year
  Sex: Male

DRUGS (10)
  1. REVLIMID [Suspect]
     Indication: PLASMA CELL MYELOMA
     Dosage: 25 MG, 14 IN 21 D, PO
     Route: 048
     Dates: start: 20121102
  2. DECADRON [Suspect]
     Indication: PRODUCT USED FOR UNKNOWN INDICATION
  3. VELCADE [Suspect]
     Indication: PRODUCT USED FOR UNKNOWN INDICATION
  4. ZOMETA (ZOLEDRONIC ACID) [Suspect]
     Indication: PRODUCT USED FOR UNKNOWN INDICATION
  5. CYMBALTA (DULOXETINE HYDROCHLORIDE) [Concomitant]
  6. DEXAMETHASONE [Concomitant]
  7. LYRICA (PREGABALIN) [Concomitant]
  8. COUMADIN (WARFARIN SODIUM) [Concomitant]
  9. SIMVASTATIN [Concomitant]
  10. PERCOCET [Concomitant]

REACTIONS (7)
  - Influenza like illness [None]
  - Local swelling [None]
  - Mood altered [None]
  - Insomnia [None]
  - Drug dose omission [None]
  - Neuropathy peripheral [None]
  - Libido decreased [None]
